FAERS Safety Report 6104761-5 (Version None)
Quarter: 2009Q1

REPORT INFORMATION
  Report Type: 
  Country: None (occurrence: None)
  Receive Date: 20090304
  Receipt Date: 20090304
  Transmission Date: 20090719
  Serious: Yes (Disabling)
  Sender: FDA-Public Use
  Company Number: None

PATIENT
  Sex: Male

DRUGS (2)
  1. LEVAQUIN [Suspect]
     Indication: BRONCHITIS
     Dosage: 500 MG 1 DAILY PO
     Route: 048
     Dates: start: 20081223, end: 20081230
  2. PREDNISONE TAB [Suspect]

REACTIONS (1)
  - TENDON RUPTURE [None]
